FAERS Safety Report 8255803-2 (Version None)
Quarter: 2012Q1

REPORT INFORMATION
  Report Type: 
  Country: None (occurrence: None)
  Receive Date: 20120329
  Receipt Date: 20120317
  Transmission Date: 20120608
  Serious: Yes (Other)
  Sender: FDA-Public Use
  Company Number: PHHO2008NL07424

PATIENT
  Age: 82 Year
  Sex: Female
  Weight: 69.1282 kg

DRUGS (8)
  1. LUCENTIS [Suspect]
     Indication: AGE-RELATED MACULAR DEGENERATION
     Dosage: 0.5 MG DAILY EY
     Dates: start: 20071023, end: 20071023
  2. LUCENTIS [Suspect]
     Indication: CHOROIDAL NEOVASCULARISATION
     Dosage: 0.5 MG DAILY EY
     Dates: start: 20071023, end: 20071023
  3. LUCENTIS [Suspect]
     Indication: CHOROIDAL NEOVASCULARISATION
     Dates: start: 20080102
  4. LUCENTIS [Suspect]
     Indication: AGE-RELATED MACULAR DEGENERATION
     Dates: start: 20080102
  5. VISUDYNE [Suspect]
     Indication: AGE-RELATED MACULAR DEGENERATION
     Dosage: 6 MG DAILY IV
     Route: 042
     Dates: start: 20071023, end: 20071023
  6. VISUDYNE [Suspect]
     Indication: CHOROIDAL NEOVASCULARISATION
     Dosage: 6 MG DAILY IV
     Route: 042
     Dates: start: 20071023, end: 20071023
  7. VISUDYNE [Suspect]
     Indication: AGE-RELATED MACULAR DEGENERATION
     Dates: start: 20080102
  8. VISUDYNE [Suspect]
     Indication: CHOROIDAL NEOVASCULARISATION
     Dates: start: 20080102

REACTIONS (6)
  - CHORIORETINAL DISORDER [None]
  - RETINAL CYST [None]
  - HYPOPERFUSION [None]
  - VISUAL ACUITY REDUCED [None]
  - VITREOUS ADHESIONS [None]
  - CHORIORETINAL ATROPHY [None]
